FAERS Safety Report 9857110 (Version 1)
Quarter: 2014Q1

REPORT INFORMATION
  Report Type: Spontaneous
  Country: GR (occurrence: None)
  Receive Date: 20140128
  Receipt Date: 20140128
  Transmission Date: 20141002
  Serious: Yes (Hospitalization)
  Sender: FDA-Public Use
  Company Number: 7264929

PATIENT
  Age: 61 Year
  Sex: Female

DRUGS (1)
  1. THYROXINE [Suspect]
     Indication: THYROIDECTOMY

REACTIONS (4)
  - Exfoliative rash [None]
  - Muscular weakness [None]
  - Hypocalcaemia [None]
  - Fatigue [None]
